FAERS Safety Report 15409260 (Version 1)
Quarter: 2018Q3

REPORT INFORMATION
  Report Type: Spontaneous
  Country: SE (occurrence: SE)
  Receive Date: 20180920
  Receipt Date: 20180920
  Transmission Date: 20181010
  Serious: Yes (Life-Threatening, Hospitalization)
  Sender: FDA-Public Use
  Company Number: SE-ELI_LILLY_AND_COMPANY-SE201809007906

PATIENT
  Age: 72 Year
  Sex: Male

DRUGS (6)
  1. PREDNISOLONE. [Concomitant]
     Active Substance: PREDNISOLONE
     Dosage: UNK, UNKNOWN
     Route: 065
  2. METOPROLOL. [Concomitant]
     Active Substance: METOPROLOL
     Dosage: UNK, UNKNOWN
     Route: 065
  3. TREO COMP                          /00794201/ [Concomitant]
     Dosage: UNK UNK, UNKNOWN
     Route: 065
  4. OMEPRAZOLE. [Concomitant]
     Active Substance: OMEPRAZOLE
     Dosage: UNK, UNKNOWN
     Route: 065
  5. OLUMIANT [Suspect]
     Active Substance: BARICITINIB
     Indication: ANKYLOSING SPONDYLITIS
     Dosage: 4 MG, DAILY
     Route: 065
     Dates: start: 20180603, end: 20180728
  6. CITODON                            /01259001/ [Concomitant]
     Dosage: UNK UNK, UNKNOWN
     Route: 065

REACTIONS (11)
  - Loss of consciousness [Recovering/Resolving]
  - Arrhythmia [Recovering/Resolving]
  - Heart rate irregular [Recovering/Resolving]
  - Hyperhidrosis [Recovering/Resolving]
  - Intracardiac thrombus [Recovering/Resolving]
  - Tremor [Recovering/Resolving]
  - Chest pain [Recovering/Resolving]
  - Fatigue [Recovering/Resolving]
  - Off label use [Unknown]
  - Heart rate increased [Recovering/Resolving]
  - Peripheral swelling [Recovering/Resolving]

NARRATIVE: CASE EVENT DATE: 20180728
